FAERS Safety Report 7669461-9 (Version None)
Quarter: 2011Q3

REPORT INFORMATION
  Report Type: 
  Country: None (occurrence: None)
  Receive Date: 20110808
  Receipt Date: 20110729
  Transmission Date: 20111222
  Serious: Yes (Other)
  Sender: FDA-Public Use
  Company Number: BR-BAYER-2011-067446

PATIENT
  Age: 18 Year
  Sex: Female
  Weight: 66 kg

DRUGS (1)
  1. YASMIN [Suspect]
     Indication: ACNE
     Dosage: 1 DF, QD
     Route: 048
     Dates: start: 20110710, end: 20110728

REACTIONS (6)
  - VISUAL IMPAIRMENT [None]
  - VISION BLURRED [None]
  - NAUSEA [None]
  - CHILLS [None]
  - THROMBOSIS [None]
  - HEADACHE [None]
